FAERS Safety Report 8182476-X (Version None)
Quarter: 2012Q1

REPORT INFORMATION
  Report Type: 
  Country: None (occurrence: None)
  Receive Date: 20120305
  Receipt Date: 20120222
  Transmission Date: 20120608
  Serious: Yes (Other)
  Sender: FDA-Public Use
  Company Number: US-BIOGENIDEC-2006BI019088

PATIENT
  Age: 44 Year
  Sex: Female
  Weight: 54 kg

DRUGS (3)
  1. AVONEX [Suspect]
     Route: 030
     Dates: end: 20071130
  2. AVONEX [Suspect]
     Route: 030
     Dates: start: 20110329, end: 20120117
  3. AVONEX [Suspect]
     Indication: MULTIPLE SCLEROSIS
     Route: 030
     Dates: start: 20041104, end: 20061213

REACTIONS (2)
  - FIBROCYSTIC BREAST DISEASE [None]
  - BREAST CANCER IN SITU [None]
